FAERS Safety Report 8934568 (Version 1)
Quarter: 2012Q4

REPORT INFORMATION
  Report Type: 
  Country: DE (occurrence: DE)
  Receive Date: 20121129
  Receipt Date: 20121129
  Transmission Date: 20130627
  Serious: Yes (Other)
  Sender: FDA-Public Use
  Company Number: DE-ROCHE-1135012

PATIENT
  Age: 58 Year
  Sex: Female

DRUGS (2)
  1. AVASTIN [Suspect]
     Indication: BREAST CANCER
     Route: 065
     Dates: start: 201204
  2. XELODA [Suspect]
     Indication: BREAST CANCER
     Route: 065

REACTIONS (3)
  - Platelet count decreased [Not Recovered/Not Resolved]
  - Haemoglobin decreased [Not Recovered/Not Resolved]
  - Metastatic neoplasm [Unknown]
